FAERS Safety Report 11752741 (Version 1)
Quarter: 2015Q4

REPORT INFORMATION
  Report Type: Spontaneous
  Country: US (occurrence: US)
  Receive Date: 20151119
  Receipt Date: 20151119
  Transmission Date: 20160304
  Serious: Yes (Other)
  Sender: FDA-Public Use
  Company Number: US-ASTRAZENECA-2015SF10214

PATIENT
  Age: 59 Year
  Sex: Female
  Weight: 74.8 kg

DRUGS (7)
  1. TAGAMET [Concomitant]
     Active Substance: CIMETIDINE
  2. ZANTAC [Concomitant]
     Active Substance: RANITIDINE HYDROCHLORIDE
     Route: 048
     Dates: start: 20150922
  3. NEXIUM [Suspect]
     Active Substance: ESOMEPRAZOLE MAGNESIUM
     Indication: HIATUS HERNIA
     Route: 048
     Dates: start: 2001, end: 20150808
  4. PREVACID [Concomitant]
     Active Substance: LANSOPRAZOLE
  5. NEXIUM [Suspect]
     Active Substance: ESOMEPRAZOLE MAGNESIUM
     Indication: GASTROOESOPHAGEAL REFLUX DISEASE
     Route: 048
     Dates: start: 2001, end: 20150808
  6. NEXIUM [Suspect]
     Active Substance: ESOMEPRAZOLE MAGNESIUM
     Indication: GASTROOESOPHAGEAL REFLUX DISEASE
     Dosage: ESOMEPRAZOLE MAGNESIUM, 40MG CAPSULES, 1 DAILY FOR ACID REFLUX AND HIATAL HERNIA
     Route: 048
     Dates: start: 201510
  7. NEXIUM [Suspect]
     Active Substance: ESOMEPRAZOLE MAGNESIUM
     Indication: HIATUS HERNIA
     Dosage: ESOMEPRAZOLE MAGNESIUM, 40MG CAPSULES, 1 DAILY FOR ACID REFLUX AND HIATAL HERNIA
     Route: 048
     Dates: start: 201510

REACTIONS (5)
  - Gastrooesophageal reflux disease [Unknown]
  - Drug ineffective [Unknown]
  - Product use issue [Unknown]
  - Diverticulitis [Unknown]
  - Off label use [Unknown]

NARRATIVE: CASE EVENT DATE: 2001
